FAERS Safety Report 19287026 (Version 3)
Quarter: 2021Q4

REPORT INFORMATION
  Report Type: Report from Study
  Country: US (occurrence: US)
  Receive Date: 20210522
  Receipt Date: 20211117
  Transmission Date: 20220303
  Serious: No
  Sender: FDA-Public Use
  Company Number: US-NOVARTISTESTPH-NVSC2021US108285

PATIENT
  Age: 55 Year
  Sex: Female

DRUGS (2)
  1. KESIMPTA [Suspect]
     Active Substance: OFATUMUMAB
     Indication: Relapsing-remitting multiple sclerosis
     Dosage: 20 MG, QMO(DAY 0; LOADING DOSE #1)
     Route: 058
     Dates: start: 20210511, end: 20210511
  2. KESIMPTA [Suspect]
     Active Substance: OFATUMUMAB
     Indication: Multiple sclerosis

REACTIONS (6)
  - Musculoskeletal stiffness [Unknown]
  - Abdominal rigidity [Unknown]
  - Chills [Recovering/Resolving]
  - Pyrexia [Recovering/Resolving]
  - Headache [Recovering/Resolving]
  - Fatigue [Recovering/Resolving]

NARRATIVE: CASE EVENT DATE: 20210511
